FAERS Safety Report 8968203 (Version 1)
Quarter: 2012Q4

REPORT INFORMATION
  Report Type: 
  Country: GB (occurrence: GB)
  Receive Date: 20121218
  Receipt Date: 20121218
  Transmission Date: 20130627
  Serious: Yes (Hospitalization)
  Sender: FDA-Public Use
  Company Number: GB-JNJFOC-20121205370

PATIENT
  Age: 3 Year
  Sex: Female

DRUGS (2)
  1. CALPOL [Suspect]
     Route: 065
  2. CALPOL [Suspect]
     Indication: PYREXIA
     Route: 065

REACTIONS (3)
  - Wheezing [Unknown]
  - Vomiting [Unknown]
  - Feeling abnormal [Unknown]
